FAERS Safety Report 9862419 (Version 1)
Quarter: 2014Q1

REPORT INFORMATION
  Report Type: Spontaneous
  Country: US (occurrence: US)
  Receive Date: 20140203
  Receipt Date: 20140203
  Transmission Date: 20141002
  Serious: No
  Sender: FDA-Public Use
  Company Number: US-BAYER-2014-016898

PATIENT
  Age: 70 Year
  Sex: Male
  Weight: 93 kg

DRUGS (4)
  1. ALEVE CAPLET [Suspect]
     Indication: MYALGIA
     Dosage: 1-2 DF, BID
     Route: 048
     Dates: start: 20140128
  2. CRESTOR [Concomitant]
  3. DIOVAN [Concomitant]
  4. LOSARTAN [Concomitant]

REACTIONS (1)
  - Drug ineffective [None]
